FAERS Safety Report 4532712-3 (Version None)
Quarter: 2004Q4

REPORT INFORMATION
  Report Type: 
  Country: None (occurrence: None)
  Receive Date: 20041221
  Receipt Date: 20041209
  Transmission Date: 20050328
  Serious: Yes (Hospitalization)
  Sender: FDA-Public Use
  Company Number: JP-JNJFOC-20040201526

PATIENT
  Sex: Male
  Weight: 53 kg

DRUGS (14)
  1. REMICADE [Suspect]
     Dosage: 3MG/KG
     Route: 041
  2. REMICADE [Suspect]
     Dosage: 3MG/KG
     Route: 041
  3. REMICADE [Suspect]
     Indication: RHEUMATOID ARTHRITIS
     Dosage: 3MG/KG
     Route: 041
  4. RHEUMATREX [Suspect]
     Route: 049
     Dates: end: 20040203
  5. RHEUMATREX [Suspect]
     Route: 049
     Dates: end: 20040203
  6. RHEUMATREX [Suspect]
     Indication: RHEUMATOID ARTHRITIS
     Route: 049
     Dates: end: 20040203
  7. PREDNISOLONE [Suspect]
     Route: 049
  8. PREDNISOLONE [Suspect]
     Route: 049
  9. PREDNISOLONE [Suspect]
     Route: 049
  10. PREDNISOLONE [Suspect]
     Indication: RHEUMATOID ARTHRITIS
     Route: 049
  11. LOXONIN [Concomitant]
     Route: 049
     Dates: start: 20031110
  12. RIMATIL [Concomitant]
     Route: 049
     Dates: start: 20030606, end: 20040107
  13. GASTROM [Concomitant]
     Route: 049
     Dates: start: 19940101
  14. LEUCOVORIN [Concomitant]
     Route: 049
     Dates: start: 20031120, end: 20040203

REACTIONS (8)
  - ASPARTATE AMINOTRANSFERASE INCREASED [None]
  - BLOOD CHLORIDE INCREASED [None]
  - CREATINE PHOSPHOKINASE DECREASED [None]
  - MYCOBACTERIUM AVIUM COMPLEX INFECTION [None]
  - PLATELET COUNT DECREASED [None]
  - PULMONARY TUBERCULOSIS [None]
  - RED BLOOD CELL COUNT DECREASED [None]
  - TUBERCULOUS PLEURISY [None]
